FAERS Safety Report 18864146 (Version 4)
Quarter: 2022Q1

REPORT INFORMATION
  Report Type: Report from Study
  Country: US (occurrence: US)
  Receive Date: 20210208
  Receipt Date: 20220302
  Transmission Date: 20220423
  Serious: No
  Sender: FDA-Public Use
  Company Number: NVSC2021US023243

PATIENT
  Sex: Female

DRUGS (1)
  1. COSENTYX [Suspect]
     Active Substance: SECUKINUMAB
     Indication: Psoriasis
     Dosage: 300 MG, QW (DOSE TOOK ON 27 JAN) (YEAR NOT GIVEN)
     Route: 058

REACTIONS (3)
  - Headache [Unknown]
  - Product prescribing issue [Unknown]
  - Therapeutic product effect incomplete [Unknown]
